FAERS Safety Report 10919565 (Version 2)
Quarter: 2015Q2

REPORT INFORMATION
  Report Type: Spontaneous
  Country: US (occurrence: US)
  Receive Date: 20150317
  Receipt Date: 20150526
  Transmission Date: 20150821
  Serious: No
  Sender: FDA-Public Use
  Company Number: US-JNJFOC-20130108666

PATIENT
  Age: 77 Year
  Sex: Male

DRUGS (3)
  1. PREZISTA [Suspect]
     Active Substance: DARUNAVIR ETHANOLATE
     Indication: PROPHYLAXIS
     Route: 048
     Dates: start: 201301
  2. TRUVADA [Concomitant]
     Active Substance: EMTRICITABINE\TENOFOVIR DISOPROXIL FUMARATE
     Route: 065
     Dates: start: 20130115
  3. NORVIR [Concomitant]
     Active Substance: RITONAVIR
     Indication: PROPHYLAXIS
     Route: 065

REACTIONS (1)
  - Medication error [Not Recovered/Not Resolved]
